FAERS Safety Report 4336761-X (Version None)
Quarter: 2004Q2

REPORT INFORMATION
  Report Type: 
  Country: None (occurrence: None)
  Receive Date: 20040408
  Receipt Date: 20040329
  Transmission Date: 20050107
  Serious: Yes (Death)
  Sender: FDA-Public Use
  Company Number: US-JNJFOC-20040306398

PATIENT
  Age: 63 Year
  Sex: Male

DRUGS (8)
  1. ULTRACET [Suspect]
     Indication: DRUG USE FOR UNKNOWN INDICATION
     Dosage: ORAL
     Route: 048
  2. PENICILLIN [Concomitant]
  3. NAPROXEN SODIUM [Concomitant]
  4. BUSPAR [Concomitant]
  5. PRILOSEC [Concomitant]
  6. ZANTAC [Concomitant]
  7. FLOMAX [Concomitant]
  8. AMBIEN [Concomitant]

REACTIONS (1)
  - COMPLETED SUICIDE [None]
